FAERS Safety Report 4628666-1 (Version None)
Quarter: 2005Q2

REPORT INFORMATION
  Report Type: 
  Country: None (occurrence: None)
  Receive Date: 20050406
  Receipt Date: 20050322
  Transmission Date: 20051028
  Serious: Yes (Death)
  Sender: FDA-Public Use
  Company Number: DSA_26170_2005

PATIENT
  Age: 18 Year
  Sex: Male
  Weight: 61.6892 kg

DRUGS (5)
  1. ATIVAN [Suspect]
     Indication: ANXIETY
     Dates: start: 20050110, end: 20050110
  2. EFFEXOR XR [Suspect]
     Dosage: 150 MG ONCE PO
     Route: 048
     Dates: start: 20050110, end: 20050110
  3. EFFEXOR XR [Suspect]
     Indication: MAJOR DEPRESSION
     Dosage: 75 MG Q DAY PO
     Route: 048
     Dates: start: 20041220, end: 20050109
  4. ALEVE [Suspect]
     Dates: start: 20050110, end: 20050110
  5. PSEUDOEPHEDRINE HYDROCHLORIDE [Suspect]
     Dates: start: 20050110, end: 20050110

REACTIONS (4)
  - COMPLETED SUICIDE [None]
  - INJURY ASPHYXIATION [None]
  - INTENTIONAL MISUSE [None]
  - RELATIONSHIP BREAKDOWN [None]
